FAERS Safety Report 20647311 (Version 1)
Quarter: 2022Q1

REPORT INFORMATION
  Report Type: Spontaneous
  Country: US (occurrence: None)
  Receive Date: 20220328
  Receipt Date: 20220328
  Transmission Date: 20220423
  Serious: Yes (Death)
  Sender: FDA-Public Use
  Company Number: None

PATIENT
  Sex: Male
  Weight: 97.98 kg

DRUGS (24)
  1. ABIRATERONE [Suspect]
     Active Substance: ABIRATERONE
     Indication: Prostate cancer
     Dosage: FREQUENCY : DAILY;?
     Route: 048
     Dates: start: 202105
  2. PREDNISONE [Concomitant]
     Active Substance: PREDNISONE
  3. ALEVE [Concomitant]
     Active Substance: NAPROXEN SODIUM
  4. ASPIRIN [Concomitant]
     Active Substance: ASPIRIN
  5. BACTRIM DS [Concomitant]
     Active Substance: SULFAMETHOXAZOLE\TRIMETHOPRIM
  6. BICALUTAMIDE [Concomitant]
     Active Substance: BICALUTAMIDE
  7. BURPROPRION ER [Concomitant]
  8. ETODOLAC [Concomitant]
     Active Substance: ETODOLAC
  9. CHLORHEXIDINE [Concomitant]
     Active Substance: CHLORHEXIDINE
  10. CLONAZEPAM [Concomitant]
     Active Substance: CLONAZEPAM
  11. DOCUSATE SODIUM [Concomitant]
     Active Substance: DOCUSATE SODIUM
  12. FUROSEMIDE [Concomitant]
     Active Substance: FUROSEMIDE
  13. LISINOPRIL [Concomitant]
     Active Substance: LISINOPRIL
  14. METAXALONE [Concomitant]
     Active Substance: METAXALONE
  15. METOPROLOL [Concomitant]
     Active Substance: METOPROLOL
  16. MORPHINE [Concomitant]
     Active Substance: MORPHINE
  17. ONDANSETRON [Concomitant]
     Active Substance: ONDANSETRON
  18. PRAVASTATIN [Concomitant]
     Active Substance: PRAVASTATIN
  19. PREVACID [Concomitant]
     Active Substance: LANSOPRAZOLE
  20. SENNA- DOCUSATE [Concomitant]
  21. TAMSULOSIN [Concomitant]
     Active Substance: TAMSULOSIN
  22. TRAZODONE [Concomitant]
     Active Substance: TRAZODONE HYDROCHLORIDE
  23. ZALEPLON [Concomitant]
     Active Substance: ZALEPLON
  24. IBUPROFEN [Concomitant]
     Active Substance: IBUPROFEN

REACTIONS (1)
  - Death [None]
